FAERS Safety Report 8849964 (Version 1)
Quarter: 2012Q4

REPORT INFORMATION
  Report Type: 
  Country: US (occurrence: US)
  Receive Date: 20121019
  Receipt Date: 20121019
  Transmission Date: 20130627
  Serious: No
  Sender: FDA-Public Use
  Company Number: US-PFIZER INC-2012257805

PATIENT
  Age: 77 Year
  Sex: Female
  Weight: 62.13 kg

DRUGS (1)
  1. BACITRACIN [Suspect]
     Dosage: UNK
     Route: 061
     Dates: start: 2012, end: 2012

REACTIONS (1)
  - Skin reaction [Unknown]
